FAERS Safety Report 11729706 (Version 1)
Quarter: 2015Q4

REPORT INFORMATION
  Report Type: Spontaneous
  Country: US (occurrence: None)
  Receive Date: 20151112
  Receipt Date: 20151112
  Transmission Date: 20160304
  Serious: Yes (Death, Hospitalization)
  Sender: FDA-Public Use
  Company Number: None

PATIENT
  Sex: Male

DRUGS (4)
  1. VICTOZA [Suspect]
     Active Substance: LIRAGLUTIDE
     Dates: start: 201210
  2. JANUVIA [Suspect]
     Active Substance: SITAGLIPTIN PHOSPHATE
     Dates: start: 200812, end: 201403
  3. ANDROGEL [Suspect]
     Active Substance: TESTOSTERONE
     Dates: start: 201002
  4. ACTOS [Suspect]
     Active Substance: PIOGLITAZONE HYDROCHLORIDE
     Dates: start: 200905, end: 201203

REACTIONS (3)
  - Deep vein thrombosis [None]
  - No therapeutic response [None]
  - Pancreatic carcinoma [None]
